FAERS Safety Report 14406604 (Version 3)
Quarter: 2018Q2

REPORT INFORMATION
  Report Type: Spontaneous
  Country: SE (occurrence: SE)
  Receive Date: 20180118
  Receipt Date: 20180508
  Transmission Date: 20180711
  Serious: Yes (Hospitalization, Other)
  Sender: FDA-Public Use
  Company Number: PHHY2018SE005200

PATIENT
  Age: 35 Year
  Sex: Female

DRUGS (16)
  1. PREDNISOLONE. [Suspect]
     Active Substance: PREDNISOLONE
     Indication: TRANSPLANT
     Dosage: 5 MG, QD(FROM MONTH 6 POST-TRANSPLANTATION)
     Route: 048
  2. IMUREL [Suspect]
     Active Substance: AZATHIOPRINE SODIUM
     Indication: TRANSPLANT
     Dosage: 1.2 MG/KG, QD
     Route: 065
  3. LUTINUS [Concomitant]
     Active Substance: PROGESTERONE
     Indication: PRODUCT USED FOR UNKNOWN INDICATION
     Dosage: 100 MG, QD
     Route: 067
  4. SOLU-MEDROL [Concomitant]
     Active Substance: METHYLPREDNISOLONE SODIUM SUCCINATE
     Indication: TRANSPLANT
     Dosage: 500 MG, ONCE/SINGLE
     Route: 042
  5. CELLCEPT [Concomitant]
     Active Substance: MYCOPHENOLATE MOFETIL\MYCOPHENOLATE MOFETIL HYDROCHLORIDE
     Dosage: UNK, BID
     Route: 048
  6. TACROLIMUS. [Suspect]
     Active Substance: TACROLIMUS
     Dosage: 10 MG, QD
     Route: 048
  7. IMUREL [Suspect]
     Active Substance: AZATHIOPRINE SODIUM
     Dosage: 2 MG/KG, UNK
     Route: 065
  8. TACROLIMUS. [Suspect]
     Active Substance: TACROLIMUS
     Indication: TRANSPLANT
     Dosage: UNK, BID
     Route: 048
  9. CELLCEPT [Concomitant]
     Active Substance: MYCOPHENOLATE MOFETIL\MYCOPHENOLATE MOFETIL HYDROCHLORIDE
     Indication: TRANSPLANT
     Dosage: 1 G, QD
     Route: 048
  10. THYMOGLOBULIN [Concomitant]
     Active Substance: LAPINE T-LYMPHOCYTE IMMUNE GLOBULIN
     Indication: T-CELL DEPLETION
     Dosage: 2.5 MG/KG, BID
     Route: 042
  11. LABETALOL [Suspect]
     Active Substance: LABETALOL\LABETALOL HYDROCHLORIDE
     Indication: BLOOD PRESSURE INCREASED
     Dosage: 200 MG, TID
     Route: 048
  12. FOLIC ACID. [Concomitant]
     Active Substance: FOLIC ACID
     Indication: PRODUCT USED FOR UNKNOWN INDICATION
     Dosage: 250 UG, QD
     Route: 048
  13. FOLIC ACID. [Concomitant]
     Active Substance: FOLIC ACID
     Dosage: 500 UG, UNK
     Route: 048
  14. VALCYTE [Concomitant]
     Active Substance: VALGANCICLOVIR HYDROCHLORIDE
     Indication: ANTIVIRAL PROPHYLAXIS
     Dosage: 450 MG, QD
     Route: 048
  15. IMUREL [Suspect]
     Active Substance: AZATHIOPRINE SODIUM
     Dosage: 2 MG/KG, QD
     Route: 065
  16. ACETYLSALICYLIC ACID [Concomitant]
     Active Substance: ASPIRIN
     Indication: PRODUCT USED FOR UNKNOWN INDICATION
     Dosage: 75 MG, QD
     Route: 065

REACTIONS (10)
  - Leukopenia [Unknown]
  - Premature delivery [Unknown]
  - Platelet count decreased [Unknown]
  - Product use in unapproved indication [Unknown]
  - Pre-eclampsia [Recovered/Resolved]
  - Transplant rejection [Recovered/Resolved]
  - Anaemia [Recovering/Resolving]
  - Normal newborn [Unknown]
  - Blood creatinine increased [Recovering/Resolving]
  - Exposure during pregnancy [Unknown]
